FAERS Safety Report 8583691-3 (Version None)
Quarter: 2012Q3

REPORT INFORMATION
  Report Type: 
  Country: None (occurrence: None)
  Receive Date: 20120809
  Receipt Date: 20120712
  Transmission Date: 20120928
  Serious: Yes (Hospitalization, Other)
  Sender: FDA-Public Use
  Company Number: US-009507513-2012SP005860

PATIENT
  Sex: Female
  Weight: 68.27 kg

DRUGS (3)
  1. NUVARING [Suspect]
     Dosage: UNK
     Dates: start: 20080501, end: 20100101
  2. NUVARING [Suspect]
     Indication: CONTRACEPTION
     Dosage: UNK
     Dates: start: 20090601, end: 20100101
  3. NUVARING [Suspect]
     Dosage: UNK
     Dates: start: 20061201, end: 20070501

REACTIONS (12)
  - THROMBOSIS [None]
  - ABDOMINAL PAIN [None]
  - DEFORMITY [None]
  - GASTRIC DISORDER [None]
  - HEADACHE [None]
  - CEREBRAL ISCHAEMIA [None]
  - CONVULSION [None]
  - APPENDIX DISORDER [None]
  - ROAD TRAFFIC ACCIDENT [None]
  - CEREBRAL HAEMORRHAGE [None]
  - LIGAMENT SPRAIN [None]
  - EMOTIONAL DISORDER [None]
